FAERS Safety Report 20082865 (Version 1)
Quarter: 2021Q4

REPORT INFORMATION
  Report Type: Spontaneous
  Country: AT (occurrence: None)
  Receive Date: 20211117
  Receipt Date: 20211117
  Transmission Date: 20220303
  Serious: Yes (Other)
  Sender: FDA-Public Use
  Company Number: AT-ROCHE-2955009

PATIENT
  Sex: Female
  Weight: 68 kg

DRUGS (4)
  1. ALECENSA [Suspect]
     Active Substance: ALECTINIB HYDROCHLORIDE
     Indication: Non-small cell lung cancer metastatic
     Dosage: 2X600 MG DAILY
     Route: 065
     Dates: start: 20170317
  2. CRIZOTINIB [Concomitant]
     Active Substance: CRIZOTINIB
     Dates: start: 20160601
  3. XGEVA [Concomitant]
     Active Substance: DENOSUMAB
     Route: 058
  4. LORLATINIB [Concomitant]
     Active Substance: LORLATINIB
     Dates: start: 20181214

REACTIONS (6)
  - Metastases to bone [Unknown]
  - Disease progression [Unknown]
  - Oedema peripheral [Unknown]
  - Flank pain [Unknown]
  - Sacral pain [Unknown]
  - Weight increased [Unknown]
